FAERS Safety Report 4656453-7 (Version None)
Quarter: 2005Q2

REPORT INFORMATION
  Report Type: 
  Country: None (occurrence: None)
  Receive Date: 20050505
  Receipt Date: 20050425
  Transmission Date: 20051028
  Serious: Yes (Other)
  Sender: FDA-Public Use
  Company Number: S05-ESP-01633-01

PATIENT
  Age: 49 Year
  Sex: Male

DRUGS (2)
  1. CIPRALEX (ESCITALOPRAM) [Suspect]
     Indication: MAJOR DEPRESSION
     Dates: start: 20041201, end: 20050115
  2. ACENOCOUMAROL [Concomitant]

REACTIONS (1)
  - HAEMATURIA [None]
